FAERS Safety Report 6425125-0 (Version None)
Quarter: 2009Q4

REPORT INFORMATION
  Report Type: 
  Country: None (occurrence: None)
  Receive Date: 20091102
  Receipt Date: 20091102
  Transmission Date: 20100525
  Serious: No
  Sender: FDA-Public Use
  Company Number: None

PATIENT
  Age: 10 Year
  Sex: Female
  Weight: 99.7913 kg

DRUGS (2)
  1. THYROID TAB [Suspect]
     Indication: AUTOIMMUNE THYROIDITIS
     Dosage: ONCE BY MOUTH PER DAY
     Route: 048
  2. WESTHROID [Suspect]
     Dosage: ONCE BY MOUTH PER DAY
     Route: 048

REACTIONS (5)
  - ASTHENIA [None]
  - FEAR [None]
  - FEELING ABNORMAL [None]
  - INSOMNIA [None]
  - IRRITABILITY [None]
